FAERS Safety Report 6249748-7 (Version None)
Quarter: 2009Q2

REPORT INFORMATION
  Report Type: 
  Country: None (occurrence: None)
  Receive Date: 20090629
  Receipt Date: 20090515
  Transmission Date: 20091009
  Serious: Yes (Death, Hospitalization, Other)
  Sender: FDA-Public Use
  Company Number: US-BAXTER-2009BH000265

PATIENT
  Age: 80 Year
  Sex: Male
  Weight: 77 kg

DRUGS (14)
  1. HEPARIN SODIUM INJECTION [Suspect]
     Indication: ATRIAL TACHYCARDIA
     Route: 058
     Dates: start: 20071214, end: 20071214
  2. HEPARIN SODIUM INJECTION [Suspect]
     Indication: ATRIAL FIBRILLATION
     Route: 058
     Dates: start: 20071214, end: 20071214
  3. HEPARIN SODIUM INJECTION [Suspect]
     Route: 058
     Dates: start: 20071226, end: 20071228
  4. HEPARIN SODIUM INJECTION [Suspect]
     Route: 058
     Dates: start: 20071226, end: 20071228
  5. HEPARIN SODIUM INJECTION [Suspect]
     Route: 058
     Dates: start: 20080114, end: 20080118
  6. HEPARIN SODIUM INJECTION [Suspect]
     Route: 058
     Dates: start: 20080114, end: 20080118
  7. ADVAIR HFA [Concomitant]
     Indication: DRUG USE FOR UNKNOWN INDICATION
     Route: 048
  8. ALBUTEROL [Concomitant]
     Indication: DRUG USE FOR UNKNOWN INDICATION
     Route: 065
  9. COMBIVENT [Concomitant]
     Indication: DRUG USE FOR UNKNOWN INDICATION
     Route: 065
  10. WELLBUTRIN [Concomitant]
     Indication: DRUG USE FOR UNKNOWN INDICATION
     Route: 048
  11. DOXAZOSIN MESYLATE [Concomitant]
     Indication: DRUG USE FOR UNKNOWN INDICATION
     Route: 048
  12. FLOMAX [Concomitant]
     Indication: DRUG USE FOR UNKNOWN INDICATION
     Route: 048
  13. SINGULAIR [Concomitant]
     Indication: DRUG USE FOR UNKNOWN INDICATION
     Route: 048
  14. LOVENOX [Concomitant]
     Indication: DRUG USE FOR UNKNOWN INDICATION
     Route: 058

REACTIONS (35)
  - ABDOMINAL DISTENSION [None]
  - ANAEMIA [None]
  - ANAPHYLACTIC SHOCK [None]
  - ASPIRATION [None]
  - BACK PAIN [None]
  - CANDIDURIA [None]
  - CHOLECYSTITIS [None]
  - CIRCULATORY COLLAPSE [None]
  - COAGULOPATHY [None]
  - DISORIENTATION [None]
  - EXTRAVASATION [None]
  - FEEDING TUBE COMPLICATION [None]
  - HYPERHIDROSIS [None]
  - HYPOTENSION [None]
  - INFECTION [None]
  - LEUKOCYTOSIS [None]
  - MALNUTRITION [None]
  - METABOLIC ACIDOSIS [None]
  - MULTI-ORGAN FAILURE [None]
  - PAIN [None]
  - PERITONITIS [None]
  - PHARYNGEAL OEDEMA [None]
  - PNEUMONIA [None]
  - PYREXIA [None]
  - RENAL FAILURE ACUTE [None]
  - RESPIRATORY ARREST [None]
  - RESPIRATORY DISTRESS [None]
  - RESPIRATORY FAILURE [None]
  - RETROPERITONEAL HAEMATOMA [None]
  - RETROPERITONEAL HAEMORRHAGE [None]
  - SHOCK [None]
  - SKIN NECROSIS [None]
  - SYSTEMIC CANDIDA [None]
  - THROMBOCYTOPENIA [None]
  - VOMITING [None]
